FAERS Safety Report 8368443-1 (Version None)
Quarter: 2012Q2

REPORT INFORMATION
  Report Type: 
  Country: None (occurrence: None)
  Receive Date: 20120517
  Receipt Date: 20120515
  Transmission Date: 20120825
  Serious: Yes (Hospitalization)
  Sender: FDA-Public Use
  Company Number: US-AMGEN-USASP2012030457

PATIENT
  Age: 68 Year
  Sex: Female

DRUGS (23)
  1. NEUPOGEN [Suspect]
     Indication: PRODUCT USED FOR UNKNOWN INDICATION
  2. PERCOCET [Concomitant]
     Dosage: UNK UNK, PRN
  3. KYTRIL [Concomitant]
     Dosage: UNK UNK, PRN
  4. COMPAZINE [Concomitant]
  5. KLOR-CON [Concomitant]
  6. VITAMIN D [Concomitant]
  7. K-PHOS NEUTRAL [Concomitant]
  8. PEPCID [Concomitant]
     Dosage: UNK UNK, PRN
  9. EMEND [Concomitant]
     Dosage: UNK UNK, PRN
  10. SUCRALFATE [Concomitant]
     Dosage: UNK UNK, PRN
  11. AMLODIPINE BESYLATE [Concomitant]
  12. BUPROPION HCL [Concomitant]
  13. CALCIUM PLUS D3 [Concomitant]
  14. BENADRYL [Concomitant]
     Dosage: UNK UNK, PRN
  15. NEURONTIN [Concomitant]
  16. PROTONIX [Concomitant]
  17. DECADRON [Concomitant]
     Dosage: UNK UNK, PRN
  18. ZOFRAN [Concomitant]
     Dosage: UNK UNK, PRN
  19. FIRST MOUTHWASH BXN [Concomitant]
  20. XGEVA [Suspect]
     Indication: PRODUCT USED FOR UNKNOWN INDICATION
     Dates: start: 20110824, end: 20120425
  21. ADVAIR DISKUS 100/50 [Concomitant]
  22. HYDROCHLOROTHIAZIDE [Concomitant]
  23. MELOXICAM [Concomitant]

REACTIONS (3)
  - BLOOD MAGNESIUM DECREASED [None]
  - HYPOPHOSPHATAEMIA [None]
  - HYPOCALCAEMIA [None]
